FAERS Safety Report 6549179-6 (Version None)
Quarter: 2010Q1

REPORT INFORMATION
  Report Type: 
  Country: None (occurrence: None)
  Receive Date: 20100125
  Receipt Date: 20100120
  Transmission Date: 20100710
  Serious: Yes (Death, Other)
  Sender: FDA-Public Use
  Company Number: JP-ELI_LILLY_AND_COMPANY-JP201001003757

PATIENT
  Age: 76 Year
  Sex: Male
  Weight: 74 kg

DRUGS (7)
  1. GEMZAR [Suspect]
     Indication: PANCREATIC CARCINOMA NON-RESECTABLE
     Dosage: UNK, OTHER
     Route: 042
     Dates: start: 20050518, end: 20051124
  2. GEMZAR [Suspect]
     Dosage: UNK, OTHER
     Route: 042
     Dates: start: 20051124, end: 20060101
  3. JUUZENTAIHOTOU [Concomitant]
     Indication: PANCREATIC CARCINOMA NON-RESECTABLE
     Dosage: 3 D/F, 3/D
     Route: 048
     Dates: start: 20050609
  4. GOSHAJINKIGAN [Concomitant]
     Indication: RENAL FAILURE
     Dosage: 2 D/F, DAILY (1/D)
     Route: 048
     Dates: start: 20050609
  5. TAKEDA KANPO [Concomitant]
     Indication: CONSTIPATION
     Route: 048
  6. ORAL ANTIDIABETICS [Concomitant]
     Indication: DIABETES MELLITUS
     Route: 048
  7. ANTIHYPERTENSIVES [Concomitant]
     Route: 048

REACTIONS (12)
  - ARTHRALGIA [None]
  - CONSTIPATION [None]
  - DEATH [None]
  - DECREASED APPETITE [None]
  - DIZZINESS [None]
  - HEPATIC FAILURE [None]
  - HYPERGEUSIA [None]
  - METASTASES TO LIVER [None]
  - NAUSEA [None]
  - OEDEMA PERIPHERAL [None]
  - PAROSMIA [None]
  - PYREXIA [None]
